FAERS Safety Report 11443325 (Version 2)
Quarter: 2015Q3

REPORT INFORMATION
  Report Type: Spontaneous
  Country: US (occurrence: US)
  Receive Date: 20150901
  Receipt Date: 20150910
  Transmission Date: 20151125
  Serious: No
  Sender: FDA-Public Use
  Company Number: US-PFIZER INC-2015290121

PATIENT
  Age: 66 Year
  Sex: Female
  Weight: 60.31 kg

DRUGS (2)
  1. CELEBREX [Suspect]
     Active Substance: CELECOXIB
     Dosage: 100 MG EVERY OTHER DAY
  2. CELEBREX [Suspect]
     Active Substance: CELECOXIB
     Indication: CHONDROCALCINOSIS PYROPHOSPHATE
     Dosage: 200 MG
     Dates: start: 1999

REACTIONS (5)
  - Diarrhoea [Recovered/Resolved]
  - Gastric disorder [Unknown]
  - Condition aggravated [Unknown]
  - Product use issue [Unknown]
  - Gastrooesophageal reflux disease [Unknown]
